FAERS Safety Report 7107436-9 (Version None)
Quarter: 2010Q4

REPORT INFORMATION
  Report Type: 
  Country: None (occurrence: None)
  Receive Date: 20101018
  Receipt Date: 20100813
  Transmission Date: 20110411
  Serious: Yes (Other)
  Sender: FDA-Public Use
  Company Number: US-WYE-H07294008

PATIENT
  Sex: Female

DRUGS (6)
  1. PREMARIN [Suspect]
     Indication: PRODUCT USED FOR UNKNOWN INDICATION
  2. MEDROXYPROGESTERONE [Suspect]
     Indication: PRODUCT USED FOR UNKNOWN INDICATION
  3. PREMPRO [Suspect]
     Indication: PRODUCT USED FOR UNKNOWN INDICATION
  4. PROMETRIUM [Suspect]
     Indication: PRODUCT USED FOR UNKNOWN INDICATION
  5. PROVERA [Suspect]
     Indication: PRODUCT USED FOR UNKNOWN INDICATION
  6. ESTRADIOL [Suspect]

REACTIONS (1)
  - BREAST CANCER [None]
